FAERS Safety Report 4757498-9 (Version None)
Quarter: 2005Q3

REPORT INFORMATION
  Report Type: 
  Country: None (occurrence: None)
  Receive Date: 20050830
  Receipt Date: 20050822
  Transmission Date: 20060218
  Serious: No
  Sender: FDA-Public Use
  Company Number: 05H-144-0302143-00

PATIENT
  Age: 59 Year
  Sex: Female
  Weight: 110 kg

DRUGS (8)
  1. SUCCINYLCHOLINE CHLORIDE [Suspect]
     Indication: MUSCLE RELAXANT THERAPY
     Dosage: 150 MG
  2. MIDAZOLAM HCL [Concomitant]
  3. PROPOFOL [Concomitant]
  4. FENTANYL [Concomitant]
  5. VECURONIUM (VECURONIUM) [Concomitant]
  6. REMIFENTANIL (REMIFENTANIL) [Concomitant]
  7. 4-6% DIFLURANE [Concomitant]
  8. OXYGEN (OXYGEN) [Concomitant]

REACTIONS (4)
  - BLOOD CREATINE PHOSPHOKINASE INCREASED [None]
  - FACIAL PALSY [None]
  - MUSCLE CONTRACTIONS INVOLUNTARY [None]
  - MYALGIA [None]
